FAERS Safety Report 6255358-8 (Version None)
Quarter: 2009Q3

REPORT INFORMATION
  Report Type: 
  Country: None (occurrence: None)
  Receive Date: 20090702
  Receipt Date: 20090622
  Transmission Date: 20100115
  Serious: Yes (Other)
  Sender: FDA-Public Use
  Company Number: US-AMGEN-STX349409

PATIENT
  Sex: Male

DRUGS (2)
  1. VECTIBIX [Suspect]
     Indication: COLORECTAL CANCER
  2. OXALIPLATIN [Concomitant]

REACTIONS (4)
  - BRONCHOSPASM [None]
  - CYANOSIS [None]
  - INFUSION RELATED REACTION [None]
  - THROMBOCYTOPENIA [None]
